FAERS Safety Report 8188189-2 (Version None)
Quarter: 2012Q1

REPORT INFORMATION
  Report Type: 
  Country: None (occurrence: None)
  Receive Date: 20120306
  Receipt Date: 20120223
  Transmission Date: 20120608
  Serious: Yes (Other)
  Sender: FDA-Public Use
  Company Number: DE-BRISTOL-MYERS SQUIBB COMPANY-16420200

PATIENT
  Age: 70 Year
  Sex: Male

DRUGS (1)
  1. IRBESARTAN + HYDROCHLOROTHIAZIDE [Suspect]
     Dosage: 1DF:300/12.5MG

REACTIONS (3)
  - HEADACHE [None]
  - TINNITUS [None]
  - ANXIETY [None]
